FAERS Safety Report 6510840-0 (Version None)
Quarter: 2009Q4

REPORT INFORMATION
  Report Type: 
  Country: None (occurrence: None)
  Receive Date: 20091222
  Receipt Date: 20090123
  Transmission Date: 20100525
  Serious: Yes (Other)
  Sender: FDA-Public Use
  Company Number: US-ASTRAZENECA-2009UW02140

PATIENT
  Sex: Female
  Weight: 84.8 kg

DRUGS (10)
  1. CRESTOR [Suspect]
     Indication: BLOOD CHOLESTEROL INCREASED
     Route: 048
  2. CRESTOR [Suspect]
     Route: 048
  3. PLAVIX [Concomitant]
  4. MIRAPEX [Concomitant]
  5. IRON [Concomitant]
  6. TRICOR [Concomitant]
  7. TOPROL-XL [Concomitant]
     Route: 048
  8. FOLIC ACID [Concomitant]
  9. LISINOPRIL [Concomitant]
     Route: 048
  10. NIACIN [Concomitant]

REACTIONS (1)
  - ABDOMINAL PAIN [None]
